FAERS Safety Report 7950164-8 (Version None)
Quarter: 2011Q4

REPORT INFORMATION
  Report Type: 
  Country: None (occurrence: None)
  Receive Date: 20111130
  Receipt Date: 20111123
  Transmission Date: 20120403
  Serious: Yes (Congenital Anomaly, Other)
  Sender: FDA-Public Use
  Company Number: US-ABBOTT-10P-163-0666938-00

PATIENT
  Sex: Female

DRUGS (1)
  1. HUMIRA [Suspect]
     Indication: MATERNAL EXPOSURE TIMING UNSPECIFIED
     Route: 064

REACTIONS (6)
  - VENTRICULAR HYPOPLASIA [None]
  - FOETAL EXPOSURE DURING PREGNANCY [None]
  - CONGENITAL TRICUSPID VALVE ATRESIA [None]
  - PULMONARY ARTERY STENOSIS [None]
  - CONGENITAL PULMONARY VALVE ATRESIA [None]
  - TRISOMY 21 [None]
